FAERS Safety Report 7675545-1 (Version None)
Quarter: 2011Q3

REPORT INFORMATION
  Report Type: 
  Country: None (occurrence: None)
  Receive Date: 20110810
  Receipt Date: 20110728
  Transmission Date: 20111222
  Serious: Yes (Other)
  Sender: FDA-Public Use
  Company Number: PHHY2011BR68346

PATIENT
  Sex: Male

DRUGS (1)
  1. DIOVAN HCT [Suspect]
     Dosage: 320 MG VALS AND 25 MG HYDRO

REACTIONS (3)
  - ASTHENIA [None]
  - HYPERTENSION [None]
  - ANGINA PECTORIS [None]
